FAERS Safety Report 5810658-8 (Version None)
Quarter: 2008Q3

REPORT INFORMATION
  Report Type: 
  Country: None (occurrence: None)
  Receive Date: 20080715
  Receipt Date: 20080425
  Transmission Date: 20090109
  Serious: Yes (Other)
  Sender: FDA-Public Use
  Company Number: US-BOEHRINGER INGELHEIM GMBH, GERMANY-2007-BP-21199BP

PATIENT
  Sex: Female
  Weight: 61 kg

DRUGS (6)
  1. MIRAPEX [Suspect]
     Indication: RESTLESS LEGS SYNDROME
     Route: 048
     Dates: start: 20000101, end: 20070101
  2. HYDROCODONE BITARTRATE + ACETAMINOPHEN [Concomitant]
  3. ZOLOFT [Concomitant]
  4. CEPHELEXIN [Concomitant]
  5. SYNTHROID [Concomitant]
  6. PREMARIN [Concomitant]

REACTIONS (10)
  - ANXIETY [None]
  - DEPRESSION [None]
  - EMOTIONAL DISTRESS [None]
  - FEAR [None]
  - HYPERSEXUALITY [None]
  - MENTAL DISORDER [None]
  - PAIN [None]
  - PATHOLOGICAL GAMBLING [None]
  - STRESS [None]
  - SUICIDE ATTEMPT [None]
